FAERS Safety Report 5650311-7 (Version None)
Quarter: 2008Q1

REPORT INFORMATION
  Report Type: 
  Country: None (occurrence: None)
  Receive Date: 20080303
  Receipt Date: 20080303
  Transmission Date: 20080703
  Serious: Yes (Other)
  Sender: FDA-Public Use
  Company Number: None

PATIENT
  Age: 47 Year
  Sex: Female
  Weight: 55.3388 kg

DRUGS (1)
  1. LEVAQUIN [Suspect]
     Indication: SINUSITIS
     Dosage: 500 MG 1 PO
     Route: 048
     Dates: start: 20080226, end: 20080229

REACTIONS (6)
  - AMNESIA [None]
  - ASTHENIA [None]
  - MUSCULAR WEAKNESS [None]
  - TENDON PAIN [None]
  - THINKING ABNORMAL [None]
  - THOUGHT BLOCKING [None]
